FAERS Safety Report 15732364 (Version 1)
Quarter: 2018Q4

REPORT INFORMATION
  Report Type: Spontaneous
  Country: US (occurrence: US)
  Receive Date: 20181217
  Receipt Date: 20181217
  Transmission Date: 20190205
  Serious: No
  Sender: FDA-Public Use
  Company Number: US-009507513-1811USA009388

PATIENT
  Age: 27 Month
  Sex: Female

DRUGS (1)
  1. ELOCON [Suspect]
     Active Substance: MOMETASONE FUROATE
     Indication: THERAPY NON-RESPONDER
     Route: 061

REACTIONS (1)
  - Product use in unapproved indication [Unknown]
